FAERS Safety Report 25533063 (Version 1)
Quarter: 2025Q3

REPORT INFORMATION
  Report Type: Spontaneous
  Country: US (occurrence: US)
  Receive Date: 20250709
  Receipt Date: 20250709
  Transmission Date: 20251021
  Serious: No
  Sender: APPCO PHARMA LLC
  Company Number: US-Appco Pharma LLC-2180162

PATIENT
  Sex: Male

DRUGS (20)
  1. DOXYCYCLINE [Suspect]
     Active Substance: DOXYCYCLINE
     Indication: Rash
  2. CETIRIZINE HYDROCHLORIDE [Concomitant]
     Active Substance: CETIRIZINE HYDROCHLORIDE
  3. PANTOPRAZOLE SODIUM [Concomitant]
     Active Substance: PANTOPRAZOLE SODIUM
  4. METOPROLOL TARTRATE [Concomitant]
     Active Substance: METOPROLOL TARTRATE
  5. CEVIMELINE HYDROCHLORIDE [Concomitant]
     Active Substance: CEVIMELINE HYDROCHLORIDE
  6. TAMSULOSIN HYDROCHLORIDE [Concomitant]
     Active Substance: TAMSULOSIN HYDROCHLORIDE
  7. TYLENOL 8HR [Concomitant]
     Active Substance: ACETAMINOPHEN
  8. LINZESS [Concomitant]
     Active Substance: LINACLOTIDE
  9. LEVOTHYROXINE [Concomitant]
     Active Substance: LEVOTHYROXINE
  10. JANUVIA [Concomitant]
     Active Substance: SITAGLIPTIN PHOSPHATE
  11. HYDROCHLOROTHIAZIDE [Concomitant]
     Active Substance: HYDROCHLOROTHIAZIDE
  12. ELIQUIS [Concomitant]
     Active Substance: APIXABAN
  13. ATORVASTATIN CALCIUM [Concomitant]
     Active Substance: ATORVASTATIN CALCIUM
  14. LISINOPRIL [Concomitant]
     Active Substance: LISINOPRIL
  15. SYNTHROID [Concomitant]
     Active Substance: LEVOTHYROXINE SODIUM
  16. EVOXAC [Concomitant]
     Active Substance: CEVIMELINE HYDROCHLORIDE
  17. AMLODIPINE BESYLATE [Concomitant]
     Active Substance: AMLODIPINE BESYLATE
  18. MUPIROCIN [Concomitant]
     Active Substance: MUPIROCIN
  19. FLUTICASONE [Concomitant]
     Active Substance: FLUTICASONE
  20. LENVIMA [Concomitant]
     Active Substance: LENVATINIB

REACTIONS (1)
  - Abdominal discomfort [Unknown]
